FAERS Safety Report 6890969-8 (Version None)
Quarter: 2010Q3

REPORT INFORMATION
  Report Type: 
  Country: None (occurrence: None)
  Receive Date: 20100731
  Receipt Date: 20090424
  Transmission Date: 20110219
  Serious: No
  Sender: FDA-Public Use
  Company Number: US-PFIZER INC-2009204531

PATIENT
  Sex: Female
  Weight: 52.154 kg

DRUGS (20)
  1. LIPITOR [Suspect]
     Indication: BLOOD TRIGLYCERIDES
     Dosage: 40 MG, 1X/DAY
     Dates: start: 20090419
  2. PROGRAF [Concomitant]
     Dosage: UNK
  3. RAPAMUNE [Concomitant]
     Dosage: UNK
  4. LOVASTATIN [Concomitant]
     Dosage: UNK
     Dates: end: 20090101
  5. LOVASTATIN [Concomitant]
     Dates: end: 20090101
  6. ATENOLOL [Concomitant]
     Dosage: UNK
  7. CARDIZEM [Concomitant]
     Dosage: UNK
  8. IMURAN [Concomitant]
     Dosage: UNK
  9. LISINOPRIL [Concomitant]
     Dosage: UNK
  10. NOVOLOG [Concomitant]
     Dosage: UNK
  11. PREDNISONE [Concomitant]
     Dosage: UNK
  12. MONTELUKAST SODIUM [Concomitant]
     Dosage: UNK
  13. PRILOSEC [Concomitant]
     Dosage: UNK
  14. ZITHROMAX [Concomitant]
     Dosage: UNK
  15. SEPTRA [Concomitant]
     Dosage: UNK
  16. ULTRASE MT20 [Concomitant]
     Dosage: UNK
  17. SERETIDE MITE [Concomitant]
     Dosage: UNK
  18. ZYRTEC [Concomitant]
     Dosage: UNK
  19. XOPENEX [Concomitant]
     Dosage: UNK
  20. VITAMINS [Concomitant]
     Dosage: UNK

REACTIONS (4)
  - ARTHRALGIA [None]
  - MYALGIA [None]
  - OEDEMA PERIPHERAL [None]
  - URTICARIA [None]
